FAERS Safety Report 17823873 (Version 1)
Quarter: 2020Q2

REPORT INFORMATION
  Report Type: Spontaneous
  Country: AU (occurrence: AU)
  Receive Date: 20200526
  Receipt Date: 20200526
  Transmission Date: 20200714
  Serious: Yes (Hospitalization)
  Sender: FDA-Public Use
  Company Number: AU-ELI_LILLY_AND_COMPANY-AU202005006649

PATIENT
  Age: 65 Year
  Sex: Female
  Weight: 64 kg

DRUGS (5)
  1. OLUMIANT [Suspect]
     Active Substance: BARICITINIB
     Indication: RHEUMATOID ARTHRITIS
     Dosage: UNK, UNKNOWN
     Route: 065
  2. METHOTREXATE. [Concomitant]
     Active Substance: METHOTREXATE
  3. ASPIRIN [ACETYLSALICYLIC ACID] [Concomitant]
     Active Substance: ASPIRIN
  4. PRAVASTATIN. [Concomitant]
     Active Substance: PRAVASTATIN
  5. FOLIC ACID. [Concomitant]
     Active Substance: FOLIC ACID

REACTIONS (16)
  - Decreased appetite [Unknown]
  - Red blood cell sedimentation rate increased [Unknown]
  - Pyrexia [Recovering/Resolving]
  - Weight decreased [Unknown]
  - Hepatic steatosis [Unknown]
  - Pallor [Unknown]
  - Adverse drug reaction [Unknown]
  - C-reactive protein increased [Recovering/Resolving]
  - Parainfluenzae virus infection [Not Recovered/Not Resolved]
  - Pulmonary mass [Unknown]
  - Nausea [Unknown]
  - Vomiting [Unknown]
  - Malaise [Unknown]
  - Crepitations [Unknown]
  - Paraneoplastic syndrome [Unknown]
  - Haemoglobin decreased [Recovering/Resolving]

NARRATIVE: CASE EVENT DATE: 202001
